FAERS Safety Report 26109049 (Version 2)
Quarter: 2025Q4

REPORT INFORMATION
  Report Type: Spontaneous
  Country: US (occurrence: US)
  Receive Date: 20251201
  Receipt Date: 20251203
  Transmission Date: 20260118
  Serious: Yes (Hospitalization)
  Sender: BELCHER PHARMACEUTICALS
  Company Number: US-BPI LABS, LLC-2025US004437

PATIENT

DRUGS (1)
  1. SEMAGLUTIDE [Suspect]
     Active Substance: SEMAGLUTIDE
     Indication: Weight control
     Dosage: STRENGTH: 5 MG/2 ML (2.5 MG/ML), ONCE A WEEK
     Route: 058
     Dates: start: 20250808

REACTIONS (4)
  - Inflammation [Unknown]
  - Gastritis [Unknown]
  - Constipation [Unknown]
  - Off label use [Unknown]
